FAERS Safety Report 4463044-X (Version None)
Quarter: 2004Q3

REPORT INFORMATION
  Report Type: 
  Country: None (occurrence: None)
  Receive Date: 20040928
  Receipt Date: 20040915
  Transmission Date: 20050211
  Serious: Yes (Hospitalization, Disabling)
  Sender: FDA-Public Use
  Company Number: HQWYE424602JUN03

PATIENT
  Age: 36 Year
  Sex: Female

DRUGS (10)
  1. RAPAMUNE [Suspect]
     Indication: IMMUNOSUPPRESSANT DRUG THERAPY
     Dosage: 2 MG 1X PER 1 DAY ORAL
     Route: 048
     Dates: start: 20021016, end: 20030601
  2. PREDNISONE [Concomitant]
  3. TACROLIMUS (TACROLIMUS) [Concomitant]
  4. BACTRIM [Concomitant]
  5. ZENAPAX [Concomitant]
  6. ASPIRIN [Concomitant]
  7. CEPHALEXIN [Concomitant]
  8. ACETAMINOPHEN [Concomitant]
  9. ENALAPRIL MALEATE [Concomitant]
  10. OMEPRAZOLE [Concomitant]

REACTIONS (8)
  - HAEMODIALYSIS [None]
  - KIDNEY TRANSPLANT REJECTION [None]
  - KLEBSIELLA INFECTION [None]
  - LEUKOCYTOCLASTIC VASCULITIS [None]
  - PYELONEPHRITIS ACUTE [None]
  - RENAL TUBULAR NECROSIS [None]
  - SKIN NECROSIS [None]
  - TOE AMPUTATION [None]
